FAERS Safety Report 5137882-4 (Version None)
Quarter: 2006Q4

REPORT INFORMATION
  Report Type: 
  Country: None (occurrence: None)
  Receive Date: 20061030
  Receipt Date: 20060202
  Transmission Date: 20070319
  Serious: No
  Sender: FDA-Public Use
  Company Number: US-GLAXOSMITHKLINE-A0592148A

PATIENT
  Age: 83 Year
  Sex: Female

DRUGS (4)
  1. ADVAIR HFA [Suspect]
     Indication: CHRONIC OBSTRUCTIVE PULMONARY DISEASE
     Dosage: 1PUFF TWICE PER DAY
     Route: 055
     Dates: start: 20060202
  2. LISINOPRIL [Concomitant]
  3. PLAVIX [Concomitant]
  4. ISORDIL [Concomitant]

REACTIONS (3)
  - ACCIDENTAL OVERDOSE [None]
  - NERVOUSNESS [None]
  - TREMOR [None]
